FAERS Safety Report 7254512-6 (Version None)
Quarter: 2011Q1

REPORT INFORMATION
  Report Type: 
  Country: None (occurrence: None)
  Receive Date: 20110129
  Receipt Date: 20100427
  Transmission Date: 20110831
  Serious: No
  Sender: FDA-Public Use
  Company Number: US-ABBOTT-10P-163-0641303-00

PATIENT
  Sex: Female
  Weight: 60.382 kg

DRUGS (1)
  1. HUMIRA [Suspect]
     Indication: RHEUMATOID ARTHRITIS
     Dates: start: 20100301

REACTIONS (4)
  - INJURY ASSOCIATED WITH DEVICE [None]
  - JOINT SWELLING [None]
  - CONTUSION [None]
  - WRONG DRUG ADMINISTERED [None]
